FAERS Safety Report 17788637 (Version 3)
Quarter: 2020Q4

REPORT INFORMATION
  Report Type: Report from Study
  Country: US (occurrence: US)
  Receive Date: 20200514
  Receipt Date: 20201110
  Transmission Date: 20210113
  Serious: Yes (Hospitalization)
  Sender: FDA-Public Use
  Company Number: US-EISAI MEDICAL RESEARCH-EC-2015-004975

PATIENT
  Age: 67 Year
  Sex: Male
  Weight: 163 kg

DRUGS (47)
  1. KLOR-CON [Concomitant]
     Active Substance: POTASSIUM CHLORIDE
  2. UREA. [Concomitant]
     Active Substance: UREA
  3. AMOXAPINE. [Concomitant]
     Active Substance: AMOXAPINE
  4. NYAMYC [Concomitant]
     Active Substance: NYSTATIN
  5. MECLIZINE [Concomitant]
     Active Substance: MECLIZINE HYDROCHLORIDE
  6. MUPIROCIN. [Concomitant]
     Active Substance: MUPIROCIN
  7. GUAIFENESIN-CODEINE [Concomitant]
  8. COLCHICINE. [Concomitant]
     Active Substance: COLCHICINE
  9. BETAMETHASONE DIPROPIO [Concomitant]
  10. MORPHINE [Concomitant]
     Active Substance: MORPHINE
  11. HIBICLENS [Concomitant]
     Active Substance: CHLORHEXIDINE GLUCONATE
  12. NYSTOP [Concomitant]
     Active Substance: NYSTATIN
  13. OXYCODONE-ACETAMINOPHEN [Concomitant]
     Active Substance: ACETAMINOPHEN\OXYCODONE HYDROCHLORIDE
  14. AMOXICILLIN. [Suspect]
     Active Substance: AMOXICILLIN
     Indication: PRODUCT USED FOR UNKNOWN INDICATION
     Dosage: DOSE AND FREQUENCY UNKNOWN
     Route: 065
     Dates: start: 20160803
  15. FLONASE [Concomitant]
     Active Substance: FLUTICASONE PROPIONATE
  16. MECLOFENAMATE SODIUM. [Concomitant]
     Active Substance: MECLOFENAMATE SODIUM
  17. ATENOLOL. [Concomitant]
     Active Substance: ATENOLOL
  18. COLCRYS [Concomitant]
     Active Substance: COLCHICINE
  19. LENVIMA [Suspect]
     Active Substance: LENVATINIB
     Route: 048
     Dates: start: 20150310, end: 2015
  20. CHLORINE [Suspect]
     Active Substance: CHLORINE
     Indication: PRODUCT USED FOR UNKNOWN INDICATION
     Dosage: DOSE AND FREQUENCY UNKNOWN
     Route: 050
  21. KETOCONAZOLE. [Concomitant]
     Active Substance: KETOCONAZOLE
  22. AMLODIPINE [Concomitant]
     Active Substance: AMLODIPINE BESYLATE
  23. INDOMETHACIN. [Concomitant]
     Active Substance: INDOMETHACIN
  24. HCTZ [Suspect]
     Active Substance: HYDROCHLOROTHIAZIDE
     Indication: HYPERTENSION
     Route: 048
     Dates: end: 201809
  25. HYDROCORTISONE. [Concomitant]
     Active Substance: HYDROCORTISONE
  26. CHERATUSSIN [Concomitant]
     Active Substance: AMMONIUM CHLORIDE\DEXTROMETHORPHAN\SODIUM CITRATE
  27. TOPROL XL [Concomitant]
     Active Substance: METOPROLOL SUCCINATE
  28. DICLOFENAC [Concomitant]
     Active Substance: DICLOFENAC
  29. SYNTHROID [Concomitant]
     Active Substance: LEVOTHYROXINE SODIUM
  30. SHINGRIX [Concomitant]
     Active Substance: RECOMBINANT VARICELLA ZOSTER VIRUS (VZV) GLYCOPROTEIN E
  31. LENVIMA [Suspect]
     Active Substance: LENVATINIB
     Indication: THYROID CANCER
     Route: 048
     Dates: start: 20150212, end: 2015
  32. NEXAVAR [Concomitant]
     Active Substance: SORAFENIB
  33. PRILOSEC [Concomitant]
     Active Substance: OMEPRAZOLE MAGNESIUM
  34. MINOCYCLINE HCL [Concomitant]
     Active Substance: MINOCYCLINE HYDROCHLORIDE
  35. ACETAMINOPHEN CODEINE [Concomitant]
     Active Substance: ACETAMINOPHEN\CODEINE PHOSPHATE
  36. OMEPRAZOLE. [Concomitant]
     Active Substance: OMEPRAZOLE
  37. LENVIMA [Suspect]
     Active Substance: LENVATINIB
     Route: 048
     Dates: start: 201507, end: 201707
  38. LENVIMA [Suspect]
     Active Substance: LENVATINIB
     Dosage: MISSED 3 DOSES
     Route: 048
     Dates: start: 2017, end: 201809
  39. LENVIMA [Suspect]
     Active Substance: LENVATINIB
     Route: 048
     Dates: start: 201810
  40. K-PHOS NEUTRAL [Concomitant]
     Active Substance: POTASSIUM PHOSPHATE\SODIUM PHOSPHATE
  41. CLINDAMYCIN PHOSPHATE. [Concomitant]
     Active Substance: CLINDAMYCIN PHOSPHATE
  42. DILAUDID [Concomitant]
     Active Substance: HYDROMORPHONE HYDROCHLORIDE
  43. NORVASC [Concomitant]
     Active Substance: AMLODIPINE BESYLATE
  44. IOPHEN-C [Concomitant]
  45. LISINOPRIL. [Concomitant]
     Active Substance: LISINOPRIL
  46. METHYLPREDNISONE [Concomitant]
     Active Substance: METHYLPREDNISOLONE
  47. PREDNISONE. [Concomitant]
     Active Substance: PREDNISONE

REACTIONS (69)
  - Chondrocalcinosis pyrophosphate [Unknown]
  - Sinus congestion [Unknown]
  - Palpitations [Unknown]
  - Cough [Not Recovered/Not Resolved]
  - Tooth abscess [Unknown]
  - Nipple pain [Unknown]
  - Joint swelling [Unknown]
  - Hordeolum [Unknown]
  - Somnolence [Not Recovered/Not Resolved]
  - Lethargy [Not Recovered/Not Resolved]
  - Feeling cold [Unknown]
  - Gout [Unknown]
  - Lymphoedema [Not Recovered/Not Resolved]
  - Epicondylitis [Unknown]
  - Fatigue [Unknown]
  - Oedema peripheral [Unknown]
  - Abdominal pain upper [Unknown]
  - Upper-airway cough syndrome [Not Recovered/Not Resolved]
  - Blood uric acid increased [Unknown]
  - Taste disorder [Unknown]
  - Product storage error [Unknown]
  - Blood pressure fluctuation [Unknown]
  - Abdominal pain [Unknown]
  - Blood potassium decreased [Unknown]
  - Toothache [Not Recovered/Not Resolved]
  - Hormone level abnormal [Unknown]
  - Muscle atrophy [Not Recovered/Not Resolved]
  - Malaise [Not Recovered/Not Resolved]
  - Productive cough [Not Recovered/Not Resolved]
  - Gait inability [Unknown]
  - Dizziness [Not Recovered/Not Resolved]
  - Vertigo [Unknown]
  - Gingival bleeding [Unknown]
  - Paraesthesia [Not Recovered/Not Resolved]
  - Breast mass [Unknown]
  - Dry mouth [Unknown]
  - Muscle fatigue [Recovering/Resolving]
  - Epistaxis [Not Recovered/Not Resolved]
  - Blood magnesium decreased [Unknown]
  - Oesophageal dilatation [Unknown]
  - Heart rate decreased [Not Recovered/Not Resolved]
  - Cognitive disorder [Recovered/Resolved]
  - Dental caries [Not Recovered/Not Resolved]
  - Muscle spasms [Not Recovered/Not Resolved]
  - Abdominal pain upper [Unknown]
  - Neck injury [Unknown]
  - Food poisoning [Unknown]
  - Dermatitis allergic [Unknown]
  - Blood iron increased [Unknown]
  - Defaecation urgency [Unknown]
  - Pain [Unknown]
  - Myelosuppression [Unknown]
  - Product packaging issue [Not Recovered/Not Resolved]
  - Diarrhoea [Not Recovered/Not Resolved]
  - Myalgia [Unknown]
  - Oropharyngeal pain [Unknown]
  - Nasal discomfort [Not Recovered/Not Resolved]
  - Electrolyte depletion [Unknown]
  - Pain in extremity [Unknown]
  - Malignant neoplasm progression [Unknown]
  - Aortic dilatation [Unknown]
  - Foreign body in eye [Unknown]
  - Arthralgia [Recovering/Resolving]
  - Synovial fluid white blood cells positive [Unknown]
  - Palmar-plantar erythrodysaesthesia syndrome [Not Recovered/Not Resolved]
  - Hypertension [Unknown]
  - Memory impairment [Unknown]
  - Bursitis [Unknown]
  - Nausea [Not Recovered/Not Resolved]

NARRATIVE: CASE EVENT DATE: 2015
